FAERS Safety Report 7157164-9 (Version None)
Quarter: 2010Q4

REPORT INFORMATION
  Report Type: 
  Country: None (occurrence: None)
  Receive Date: 20101214
  Receipt Date: 20091215
  Transmission Date: 20110411
  Serious: No
  Sender: FDA-Public Use
  Company Number: US-ASTRAZENECA-2009SE32178

PATIENT
  Sex: Female
  Weight: 72.1 kg

DRUGS (3)
  1. CRESTOR [Interacting]
     Indication: BLOOD CHOLESTEROL INCREASED
     Route: 048
     Dates: start: 20090801, end: 20090815
  2. TOPROL-XL [Suspect]
     Route: 048
     Dates: start: 20090901, end: 20091124
  3. VERAPAMIL [Interacting]
     Route: 065

REACTIONS (3)
  - ALOPECIA [None]
  - DRUG INTERACTION [None]
  - MUSCLE SPASMS [None]
